FAERS Safety Report 7001816-8 (Version None)
Quarter: 2010Q3

REPORT INFORMATION
  Report Type: 
  Country: None (occurrence: None)
  Receive Date: 20100920
  Receipt Date: 20071204
  Transmission Date: 20110219
  Serious: Yes (Other)
  Sender: FDA-Public Use
  Company Number: US-ASTRAZENECA-2007UW19315

PATIENT
  Sex: Male

DRUGS (8)
  1. SEROQUEL [Suspect]
     Indication: BIPOLAR DISORDER
     Route: 048
     Dates: start: 20040817
  2. SEROQUEL [Suspect]
     Route: 048
     Dates: start: 20050130
  3. ZYPREXA [Concomitant]
  4. METFORMIN HCL [Concomitant]
     Dosage: 500 DISPENSED
     Dates: start: 20050130
  5. DIAZEPAM [Concomitant]
     Dosage: 5 MG DISPENSED
     Dates: start: 20050131
  6. DOCUSATE SODIUM [Concomitant]
     Dosage: 100 MG DISPENSED
     Dates: start: 20050131
  7. ESOMEPRAZOLE MAGNESIUM [Concomitant]
     Dosage: 20 MG DISPENSED
     Dates: start: 20050131
  8. CYCLOBENZAPRINE HCL [Concomitant]
     Dosage: 10 MG DISPENSED
     Dates: start: 20050131

REACTIONS (2)
  - DIABETES MELLITUS [None]
  - PANCREATITIS ACUTE [None]
